FAERS Safety Report 21507880 (Version 1)
Quarter: 2022Q4

REPORT INFORMATION
  Report Type: Spontaneous
  Country: US (occurrence: None)
  Receive Date: 20221023
  Receipt Date: 20221023
  Transmission Date: 20230113
  Serious: Yes (Life-Threatening, Hospitalization)
  Sender: FDA-Public Use
  Company Number: None

PATIENT
  Age: 57 Year
  Sex: Male
  Weight: 110.25 kg

DRUGS (3)
  1. TIANEPTINE [Suspect]
     Active Substance: TIANEPTINE
     Indication: Analgesic therapy
     Dates: start: 20180825, end: 20201115
  2. LISINOPRIL [Concomitant]
     Active Substance: LISINOPRIL
  3. GABAPENTIN [Concomitant]
     Active Substance: GABAPENTIN

REACTIONS (11)
  - Drug dependence [None]
  - Withdrawal syndrome [None]
  - Feeding disorder [None]
  - Movement disorder [None]
  - Loss of consciousness [None]
  - Delusion [None]
  - Cardiac arrest [None]
  - Body temperature fluctuation [None]
  - Muscle spasms [None]
  - Insomnia [None]
  - Gastrointestinal disorder [None]

NARRATIVE: CASE EVENT DATE: 20201118
